FAERS Safety Report 13442978 (Version 3)
Quarter: 2018Q3

REPORT INFORMATION
  Report Type: Report from Study
  Country: IT (occurrence: IT)
  Receive Date: 20170414
  Receipt Date: 20180704
  Transmission Date: 20181010
  Serious: Yes (Other)
  Sender: FDA-Public Use
  Company Number: IT-TEVA-753649ACC

PATIENT
  Age: 42 Year
  Sex: Female

DRUGS (6)
  1. VALDORM ? 30 MG CAPSULE [Suspect]
     Active Substance: FLURAZEPAM HYDROCHLORIDE
     Indication: PRODUCT USED FOR UNKNOWN INDICATION
  2. SEROQUEL [Suspect]
     Active Substance: QUETIAPINE FUMARATE
     Indication: INTENTIONAL SELF-INJURY
     Dosage: 4 DF, TOTAL (200 MG)
     Route: 048
     Dates: start: 20161206, end: 20161206
  3. SEROQUEL [Suspect]
     Active Substance: QUETIAPINE FUMARATE
     Indication: PRODUCT USED FOR UNKNOWN INDICATION
  4. LORAZEPAM. [Suspect]
     Active Substance: LORAZEPAM
     Indication: PRODUCT USED FOR UNKNOWN INDICATION
  5. LORAZEPAM. [Suspect]
     Active Substance: LORAZEPAM
     Indication: INTENTIONAL SELF-INJURY
     Dosage: 7.5 MG, TOTAL
     Route: 048
     Dates: start: 20161206, end: 20161206
  6. VALDORM ? 30 MG CAPSULE [Suspect]
     Active Substance: FLURAZEPAM HYDROCHLORIDE
     Indication: INTENTIONAL SELF-INJURY
     Dosage: 3 DF, TOTAL (30 MG)
     Route: 048
     Dates: start: 20161206, end: 20161206

REACTIONS (2)
  - Intentional self-injury [Unknown]
  - Drug abuse [Unknown]

NARRATIVE: CASE EVENT DATE: 20161206
